FAERS Safety Report 4331983-6 (Version None)
Quarter: 2004Q2

REPORT INFORMATION
  Report Type: 
  Country: None (occurrence: None)
  Receive Date: 20040405
  Receipt Date: 20030910
  Transmission Date: 20050107
  Serious: No
  Sender: FDA-Public Use
  Company Number: US-GLAXOSMITHKLINE-A0425342A

PATIENT
  Age: 79 Year
  Sex: Male

DRUGS (3)
  1. SEREVENT [Suspect]
     Dosage: 50MCG VARIABLE DOSE
     Route: 055
     Dates: start: 20000101
  2. AGRYLIN [Concomitant]
  3. LIPITOR [Concomitant]
     Dates: start: 20030901

REACTIONS (1)
  - HEART RATE IRREGULAR [None]
